FAERS Safety Report 12630776 (Version 2)
Quarter: 2016Q3

REPORT INFORMATION
  Report Type: Spontaneous
  Country: US (occurrence: US)
  Receive Date: 20160808
  Receipt Date: 20160928
  Transmission Date: 20161109
  Serious: No
  Sender: FDA-Public Use
  Company Number: US-PFIZER INC-2016364223

PATIENT
  Age: 33 Year
  Sex: Male

DRUGS (2)
  1. VINCRISTINE SULFATE. [Suspect]
     Active Substance: VINCRISTINE SULFATE
     Indication: ACUTE LYMPHOCYTIC LEUKAEMIA
     Dosage: UNK
     Route: 042
  2. PREDNISONE. [Suspect]
     Active Substance: PREDNISONE
     Dosage: UNK

REACTIONS (2)
  - Disease recurrence [Unknown]
  - Acute lymphocytic leukaemia [Unknown]
